FAERS Safety Report 7089305-6 (Version None)
Quarter: 2010Q4

REPORT INFORMATION
  Report Type: 
  Country: None (occurrence: None)
  Receive Date: 20101108
  Receipt Date: 20101101
  Transmission Date: 20110411
  Serious: Yes (Other)
  Sender: FDA-Public Use
  Company Number: BR-ABBOTT-10P-020-0682714-00

PATIENT
  Sex: Female
  Weight: 98 kg

DRUGS (3)
  1. DEPAKENE [Suspect]
     Indication: BIPOLAR DISORDER
     Route: 048
     Dates: start: 20101022
  2. DEPAKENE [Suspect]
  3. RIVOTRIL [Concomitant]
     Indication: INSOMNIA
     Route: 048

REACTIONS (9)
  - ABDOMINAL PAIN [None]
  - AGGRESSION [None]
  - ALOPECIA [None]
  - BLINDNESS [None]
  - DIABETES MELLITUS [None]
  - HEADACHE [None]
  - NAUSEA [None]
  - URINARY TRACT INFECTION [None]
  - WEIGHT INCREASED [None]
